FAERS Safety Report 6595972-3 (Version None)
Quarter: 2010Q1

REPORT INFORMATION
  Report Type: 
  Country: None (occurrence: None)
  Receive Date: 20100223
  Receipt Date: 20100212
  Transmission Date: 20100710
  Serious: Yes (Hospitalization)
  Sender: FDA-Public Use
  Company Number: US-NOVOPROD-304311

PATIENT
  Age: 80 Year
  Sex: Female

DRUGS (2)
  1. NOVOLOG [Suspect]
     Indication: INSULIN-REQUIRING TYPE 2 DIABETES MELLITUS
     Dosage: UNK
     Route: 058
  2. LANTUS [Suspect]
     Indication: INSULIN-REQUIRING TYPE 2 DIABETES MELLITUS
     Dosage: 28 IU, QD
     Route: 058
     Dates: start: 20070101

REACTIONS (3)
  - ABDOMINAL PAIN UPPER [None]
  - HIATUS HERNIA [None]
  - MALAISE [None]
